FAERS Safety Report 8316889 (Version 3)
Quarter: 2013Q4

REPORT INFORMATION
  Report Type: Spontaneous
  Country: US (occurrence: None)
  Receive Date: 20111220
  Receipt Date: 20131218
  Transmission Date: 20140711
  Serious: Yes (Hospitalization)
  Sender: FDA-Public Use
  Company Number: 2011SGN00350

PATIENT
  Age: 50 Year
  Sex: Female
  Weight: 56.4 kg

DRUGS (12)
  1. BRENTUXIMAB VEDOTIN [Suspect]
     Indication: T-CELL LYMPHOMA
     Dosage: 1.8 MG/KG, Q21D, INTRAVENOUS
     Route: 042
     Dates: start: 20111101, end: 20111122
  2. BRENTUXIMAB VEDOTIN [Suspect]
     Indication: HUMAN T-CELL LYMPHOTROPIC VIRUS TYPE I INFECTION
     Dosage: 1.8 MG/KG, Q21D, INTRAVENOUS
     Route: 042
     Dates: start: 20111101, end: 20111122
  3. CYCLOPHOSPHAMIDE (CYCLOPHOSPHAMIDE) [Suspect]
     Indication: T-CELL LYMPHOMA
     Dosage: 750 MG/M2, Q21D, INTRAVENOUS
     Route: 042
     Dates: start: 20111101, end: 20111122
  4. CYCLOPHOSPHAMIDE (CYCLOPHOSPHAMIDE) [Suspect]
     Indication: HUMAN T-CELL LYMPHOTROPIC VIRUS TYPE I INFECTION
     Dosage: 750 MG/M2, Q21D, INTRAVENOUS
     Route: 042
     Dates: start: 20111101, end: 20111122
  5. DOXORUBICIN HYDROCHLORIDE [Suspect]
     Indication: T-CELL LYMPHOMA
     Dosage: 50 MG/M2, Q21D, INTRAVENOUS
     Route: 042
     Dates: start: 20111101, end: 20111122
  6. DOXORUBICIN HYDROCHLORIDE [Suspect]
     Indication: HUMAN T-CELL LYMPHOTROPIC VIRUS TYPE I INFECTION
     Dosage: 50 MG/M2, Q21D, INTRAVENOUS
     Route: 042
     Dates: start: 20111101, end: 20111122
  7. PREDNISONE [Suspect]
     Indication: T-CELL LYMPHOMA
     Dosage: 100 MG, Q21D, ORAL
     Route: 048
     Dates: start: 20111101, end: 20111122
  8. PREDNISONE [Suspect]
     Indication: HUMAN T-CELL LYMPHOTROPIC VIRUS TYPE I INFECTION
     Dosage: 100 MG, Q21D, ORAL
     Route: 048
     Dates: start: 20111101, end: 20111122
  9. OMEPRAZOLE [Concomitant]
  10. ALLOPURINOL [Concomitant]
  11. OXYCODONE (OXYCODONE) [Concomitant]
  12. BACTRIM DS [Concomitant]

REACTIONS (2)
  - Febrile neutropenia [None]
  - Type IV hypersensitivity reaction [None]
